FAERS Safety Report 25318258 (Version 1)
Quarter: 2025Q2

REPORT INFORMATION
  Report Type: Spontaneous
  Country: US (occurrence: US)
  Receive Date: 20250515
  Receipt Date: 20250515
  Transmission Date: 20250716
  Serious: No
  Sender: BAYER HEALTHCARE LLC
  Company Number: US-BAYER-2025A065712

PATIENT
  Age: 33 Year
  Sex: Male

DRUGS (3)
  1. CLARITIN LIQUI-GELS [Suspect]
     Active Substance: LORATADINE
     Dosage: 1 DF, QD
     Route: 048
     Dates: start: 20250511
  2. FLONASE [Concomitant]
     Active Substance: FLUTICASONE PROPIONATE
  3. SALINE [Concomitant]
     Active Substance: SODIUM CHLORIDE
     Route: 045

REACTIONS (1)
  - Therapeutic response shortened [Unknown]

NARRATIVE: CASE EVENT DATE: 20250511
